FAERS Safety Report 24808745 (Version 2)
Quarter: 2025Q1

REPORT INFORMATION
  Report Type: Spontaneous
  Country: CN (occurrence: CN)
  Receive Date: 20250106
  Receipt Date: 20250129
  Transmission Date: 20250408
  Serious: Yes (Hospitalization, Other)
  Sender: NOVITIUM PHARMA
  Company Number: CN-NOVITIUMPHARMA-2025CNNVP00007

PATIENT
  Age: 33 Year
  Sex: Female
  Weight: 40 kg

DRUGS (2)
  1. HYDROXYCHLOROQUINE SULFATE [Suspect]
     Active Substance: HYDROXYCHLOROQUINE SULFATE
     Indication: Systemic lupus erythematosus
     Route: 048
  2. Prednisone-acetate [Concomitant]
     Indication: Systemic lupus erythematosus

REACTIONS (4)
  - Cystoid macular oedema [Recovering/Resolving]
  - Retinopathy [Recovering/Resolving]
  - Incorrect dose administered [Unknown]
  - Overdose [Unknown]
